FAERS Safety Report 7953464-0 (Version None)
Quarter: 2011Q4

REPORT INFORMATION
  Report Type: 
  Country: None (occurrence: None)
  Receive Date: 20111202
  Receipt Date: 20111129
  Transmission Date: 20120403
  Serious: Yes (Hospitalization, Other)
  Sender: FDA-Public Use
  Company Number: US-PFIZER INC-2011129722

PATIENT
  Sex: Male

DRUGS (3)
  1. CHANTIX [Suspect]
     Dosage: UNK
     Dates: start: 20090701, end: 20091220
  2. PROTONIX [Concomitant]
     Indication: GASTROOESOPHAGEAL REFLUX DISEASE
     Dosage: UNK
     Dates: start: 20050101
  3. CHANTIX [Suspect]
     Indication: SMOKING CESSATION THERAPY
     Dosage: UNK
     Dates: start: 20090301, end: 20090401

REACTIONS (4)
  - ANXIETY [None]
  - INTENTIONAL OVERDOSE [None]
  - SUICIDE ATTEMPT [None]
  - DEPRESSION [None]
